FAERS Safety Report 16392939 (Version 1)
Quarter: 2019Q2

REPORT INFORMATION
  Report Type: Report from Study
  Country: CZ (occurrence: CZ)
  Receive Date: 20190605
  Receipt Date: 20190605
  Transmission Date: 20190711
  Serious: Yes (Life-Threatening, Hospitalization, Other)
  Sender: FDA-Public Use
  Company Number: CZ-MYLANLABS-2019M1052926

PATIENT
  Age: 64 Year
  Sex: Female

DRUGS (9)
  1. DOXORUBICIN [Suspect]
     Active Substance: DOXORUBICIN
     Indication: BREAST CANCER
     Dosage: DAY 1 OF FOUR 14-DAY CYCLES (60MG/M2)
     Route: 042
     Dates: start: 20151029, end: 20151215
  2. CYCLOPHOSPHAMIDE. [Suspect]
     Active Substance: CYCLOPHOSPHAMIDE
     Indication: BREAST CANCER
     Dosage: DAY 1 OF FOUR 14-DAY CYCLES (60MG/M2)
     Route: 015
     Dates: start: 20151029, end: 20151217
  3. TENAXUM [Concomitant]
     Active Substance: RILMENIDINE
     Indication: HYPERTENSION
     Dosage: 1 MILLIGRAM DAILY;
     Route: 048
  4. TRITACE [Concomitant]
     Active Substance: RAMIPRIL
     Indication: HYPERTENSION
     Dosage: 5 MILLIGRAM DAILY;
     Route: 048
  5. HELICID                            /00661201/ [Concomitant]
     Active Substance: OMEPRAZOLE
     Indication: ABDOMINAL PAIN UPPER
     Dosage: 20 MILLIGRAM DAILY;
     Route: 048
  6. PACLITAXEL. [Suspect]
     Active Substance: PACLITAXEL
     Indication: BREAST CANCER
     Dosage: DAY 1 OF 12 WEEKLY CYCLES (80MG/M2)
     Route: 042
     Dates: start: 20150707, end: 20151013
  7. ABT 888 [Suspect]
     Active Substance: VELIPARIB
     Indication: BREAST CANCER
     Dosage: 50 MG/M2 DAILY; AUC 6 DAY 1 OF
     Route: 048
     Dates: start: 20150709, end: 20151021
  8. CARBOPLATIN. [Suspect]
     Active Substance: CARBOPLATIN
     Indication: BREAST CANCER
     Dosage: AUC 6 DAY 1 OF FOUR 21-DAY CYCLES
     Route: 042
     Dates: start: 20150709, end: 20151007
  9. ZOLPINOX [Concomitant]
     Indication: INSOMNIA
     Dosage: 10 MILLIGRAM DAILY;
     Route: 048
     Dates: start: 201507

REACTIONS (1)
  - Acute myeloid leukaemia [Not Recovered/Not Resolved]

NARRATIVE: CASE EVENT DATE: 20181101
